FAERS Safety Report 13144534 (Version 1)
Quarter: 2017Q1

REPORT INFORMATION
  Report Type: Spontaneous
  Country: US (occurrence: US)
  Receive Date: 20170124
  Receipt Date: 20170124
  Transmission Date: 20170428
  Serious: No
  Sender: FDA-Public Use
  Company Number: US-TEVA-673852USA

PATIENT
  Sex: Female

DRUGS (1)
  1. DEXTROAMPHETAMINE SULFATE. [Suspect]
     Active Substance: DEXTROAMPHETAMINE SULFATE
     Dates: start: 201605

REACTIONS (5)
  - Constipation [Recovered/Resolved]
  - Abdominal pain upper [Recovered/Resolved]
  - Product substitution issue [Unknown]
  - Headache [Recovered/Resolved]
  - Malaise [Recovered/Resolved]

NARRATIVE: CASE EVENT DATE: 201605
